FAERS Safety Report 8496806-2 (Version None)
Quarter: 2012Q3

REPORT INFORMATION
  Report Type: 
  Country: None (occurrence: None)
  Receive Date: 20120709
  Receipt Date: 20120703
  Transmission Date: 20120928
  Serious: Yes (Hospitalization, Other)
  Sender: FDA-Public Use
  Company Number: GB-B.I. PHARMACEUTICALS,INC./RIDGEFIELD-2012-UK-00873UK

PATIENT
  Age: 93 Year
  Sex: Female

DRUGS (4)
  1. DIPHENHYDRAMINE HCL [Concomitant]
  2. ASPIRIN [Suspect]
     Dosage: 75 MG
     Route: 048
     Dates: end: 20120525
  3. ZOPICLONE [Concomitant]
  4. PERSANTINE [Suspect]
     Dosage: 200 MG
     Route: 048
     Dates: end: 20120530

REACTIONS (1)
  - GASTRIC HAEMORRHAGE [None]
